FAERS Safety Report 15678999 (Version 1)
Quarter: 2018Q4

REPORT INFORMATION
  Report Type: Spontaneous
  Country: US (occurrence: US)
  Receive Date: 20181202
  Receipt Date: 20181202
  Transmission Date: 20190205
  Serious: No
  Sender: FDA-Public Use
  Company Number: US-TEVA-2018-US-982996

PATIENT
  Age: 56 Year
  Sex: Female

DRUGS (1)
  1. BACLOFEN. [Suspect]
     Active Substance: BACLOFEN
     Route: 065

REACTIONS (4)
  - Rash [Unknown]
  - Nightmare [Unknown]
  - Skin infection [Unknown]
  - Dermatitis allergic [Unknown]
